FAERS Safety Report 4654818-0 (Version None)
Quarter: 2005Q2

REPORT INFORMATION
  Report Type: 
  Country: None (occurrence: None)
  Receive Date: 20050505
  Receipt Date: 20050505
  Transmission Date: 20051028
  Serious: Yes (Disabling)
  Sender: FDA-Public Use
  Company Number: None

PATIENT
  Age: 39 Year
  Sex: Female
  Weight: 49.8957 kg

DRUGS (4)
  1. LEVAQUIN [Suspect]
     Indication: SINUSITIS
     Dosage: 1 TABLET   ONCE A DAY   ORAL
     Route: 048
     Dates: start: 20050421, end: 20050430
  2. RHINOCORT [Concomitant]
  3. PLATINOL [Concomitant]
  4. ADVIL [Concomitant]

REACTIONS (7)
  - ARTHROPATHY [None]
  - DIFFICULTY IN WALKING [None]
  - MYALGIA [None]
  - PAIN [None]
  - PAIN IN EXTREMITY [None]
  - PARAESTHESIA [None]
  - SWELLING [None]
